FAERS Safety Report 10447153 (Version 1)
Quarter: 2014Q3

REPORT INFORMATION
  Report Type: Spontaneous
  Country: US (occurrence: US)
  Receive Date: 20140911
  Receipt Date: 20140911
  Transmission Date: 20150326
  Serious: No
  Sender: FDA-Public Use
  Company Number: US-PFIZER INC-2014251420

PATIENT
  Age: 83 Year
  Sex: Female
  Weight: 64.85 kg

DRUGS (1)
  1. AROMASIN [Suspect]
     Active Substance: EXEMESTANE
     Indication: BREAST CANCER
     Dosage: UNK
     Dates: end: 20140815

REACTIONS (2)
  - Disease progression [Unknown]
  - Breast cancer [Unknown]
